FAERS Safety Report 7717427-2 (Version None)
Quarter: 2011Q3

REPORT INFORMATION
  Report Type: 
  Country: None (occurrence: None)
  Receive Date: 20110830
  Receipt Date: 20110822
  Transmission Date: 20111222
  Serious: Yes (Other)
  Sender: FDA-Public Use
  Company Number: US-ASTELLAS-2011US005191

PATIENT
  Sex: Female

DRUGS (1)
  1. ERLOTINIB HYDROCHLORIDE [Suspect]
     Indication: LUNG NEOPLASM MALIGNANT
     Dosage: 150 MG, UID/QD
     Route: 048
     Dates: start: 20110803, end: 20110812

REACTIONS (4)
  - SWELLING FACE [None]
  - SWOLLEN TONGUE [None]
  - LOCAL SWELLING [None]
  - HYPERSENSITIVITY [None]
